FAERS Safety Report 9821922 (Version 1)
Quarter: 2014Q1

REPORT INFORMATION
  Report Type: Spontaneous
  Country: JP (occurrence: JP)
  Receive Date: 20140116
  Receipt Date: 20140116
  Transmission Date: 20141002
  Serious: Yes (Hospitalization, Other)
  Sender: FDA-Public Use
  Company Number: JP-ASTRAZENECA-2014SE03185

PATIENT
  Age: 73 Year
  Sex: Male
  Weight: 60.5 kg

DRUGS (7)
  1. QUETIAPINE FUMARATE [Suspect]
     Indication: BIPOLAR I DISORDER
     Route: 048
  2. LITHIUM CARBONATE [Concomitant]
  3. BIPERIDEN HYDROCHLORIDE [Concomitant]
  4. NITRAZEPAM [Concomitant]
     Route: 048
  5. ESTAZOLAM [Concomitant]
     Route: 048
  6. TRIHEXYPHENIDYL HYDROCHLORIDE [Concomitant]
  7. HALOPERIDOL [Concomitant]
     Route: 048

REACTIONS (6)
  - Altered state of consciousness [Recovering/Resolving]
  - Crush syndrome [Unknown]
  - Sciatic nerve palsy [Not Recovered/Not Resolved]
  - Deep vein thrombosis [Recovered/Resolved]
  - Pulmonary embolism [Recovered/Resolved]
  - Off label use [Unknown]
